FAERS Safety Report 16243852 (Version 2)
Quarter: 2019Q2

REPORT INFORMATION
  Report Type: Spontaneous
  Country: US (occurrence: US)
  Receive Date: 20190426
  Receipt Date: 20190508
  Transmission Date: 20190711
  Serious: No
  Sender: FDA-Public Use
  Company Number: US-TEVA-2019-US-1039466

PATIENT
  Sex: Female

DRUGS (1)
  1. PIMECROLIMUS. [Suspect]
     Active Substance: PIMECROLIMUS
     Indication: ERYTHEMA
     Route: 065
     Dates: start: 20190404, end: 20190405

REACTIONS (2)
  - Eye irritation [Unknown]
  - Hypersensitivity [Unknown]
